FAERS Safety Report 23659182 (Version 2)
Quarter: 2024Q2

REPORT INFORMATION
  Report Type: Spontaneous
  Country: FR (occurrence: FR)
  Receive Date: 20240321
  Receipt Date: 20240604
  Transmission Date: 20240716
  Serious: Yes (Hospitalization)
  Sender: FDA-Public Use
  Company Number: None

PATIENT
  Age: 80 Year
  Sex: Male
  Weight: 94 kg

DRUGS (16)
  1. LANSOPRAZOLE [Suspect]
     Active Substance: LANSOPRAZOLE
     Indication: Gastrooesophageal reflux disease
     Dosage: 30 MILLIGRAM, QD
     Route: 048
     Dates: end: 20230908
  2. LANSOPRAZOLE [Suspect]
     Active Substance: LANSOPRAZOLE
     Dosage: 15 MILLIGRAM, QD
     Route: 048
     Dates: start: 20230908
  3. AMOXICILLIN [Suspect]
     Active Substance: AMOXICILLIN
     Indication: Pneumonia bacterial
     Dosage: 3 GRAM, QD
     Route: 048
     Dates: start: 20230901, end: 20230906
  4. AMOXICILLIN [Suspect]
     Active Substance: AMOXICILLIN
     Dosage: 3 GRAM, QD
     Route: 048
     Dates: start: 20230913, end: 20230915
  5. AMOXICILLIN\CLAVULANIC ACID [Suspect]
     Active Substance: AMOXICILLIN\CLAVULANIC ACID
     Indication: Pneumonia bacterial
     Dosage: 3 DOSAGE FORM, QD
     Route: 042
     Dates: start: 20230909, end: 20230913
  6. ALFUZOSIN HYDROCHLORIDE [Suspect]
     Active Substance: ALFUZOSIN HYDROCHLORIDE
     Indication: Benign prostatic hyperplasia
     Dosage: 10 MILLIGRAM, QD
     Route: 048
  7. FLUINDIONE [Suspect]
     Active Substance: FLUINDIONE
     Indication: Atrial fibrillation
     Dosage: 15 MILLIGRAM, QD
     Route: 048
  8. ROSUVASTATIN [Suspect]
     Active Substance: ROSUVASTATIN
     Indication: Dyslipidaemia
     Dosage: 5 MILLIGRAM, QD
     Route: 048
     Dates: end: 20240302
  9. FUROSEMIDE [Suspect]
     Active Substance: FUROSEMIDE
     Indication: Hypertension
     Dosage: 40 MILLIGRAM, QD
     Route: 048
  10. PAROXETINE [Suspect]
     Active Substance: PAROXETINE
     Indication: Depression
     Dosage: 20 MILLIGRAM, QD
     Route: 048
  11. CLAVULANIC ACID [Suspect]
     Active Substance: CLAVULANIC ACID
     Indication: Pneumonia bacterial
     Dosage: 375 MILLIGRAM, QD
     Route: 048
     Dates: start: 20230901, end: 20230906
  12. CLAVULANIC ACID [Suspect]
     Active Substance: CLAVULANIC ACID
     Dosage: 375 MILLIGRAM, QD
     Route: 048
     Dates: start: 20230913, end: 20230915
  13. POTASSIUM CHLORIDE [Concomitant]
     Active Substance: POTASSIUM CHLORIDE
     Dosage: UNK
  14. CHOLECALCIFEROL [Concomitant]
     Active Substance: CHOLECALCIFEROL
     Dosage: UNK
  15. CHOLECALCIFEROL [Concomitant]
     Active Substance: CHOLECALCIFEROL
  16. Transipeg [Concomitant]
     Dosage: UNK

REACTIONS (3)
  - Hepatic cytolysis [Recovered/Resolved]
  - Blood bilirubin increased [Recovered/Resolved]
  - Cholestasis [Recovered/Resolved]

NARRATIVE: CASE EVENT DATE: 20230909
